FAERS Safety Report 10934694 (Version 2)
Quarter: 2015Q2

REPORT INFORMATION
  Report Type: Report from Study
  Country: CZ (occurrence: CZ)
  Receive Date: 20150320
  Receipt Date: 20150618
  Transmission Date: 20150821
  Serious: Yes (Death, Other)
  Sender: FDA-Public Use
  Company Number: CZ-PFIZER INC-2015096972

PATIENT
  Age: 63 Year
  Sex: Female

DRUGS (4)
  1. ANOPYRIN [Concomitant]
     Active Substance: ASPIRIN
  2. INLYTA [Suspect]
     Active Substance: AXITINIB
     Indication: RENAL CELL CARCINOMA
     Dosage: 5 MG, 2X/DAY
     Route: 048
     Dates: start: 201401
  3. INLYTA [Suspect]
     Active Substance: AXITINIB
     Dosage: 6 MG, 2X/DAY
     Route: 048
     Dates: end: 20141208
  4. TRANSTEC [Concomitant]
     Active Substance: BUPRENORPHINE

REACTIONS (8)
  - Tinnitus [Unknown]
  - Rhinitis [Unknown]
  - Dysphonia [Unknown]
  - Eye irritation [Unknown]
  - Ascites [Unknown]
  - Disease progression [Fatal]
  - Renal cell carcinoma [Fatal]
  - Lacrimation increased [Unknown]
